FAERS Safety Report 24304707 (Version 1)
Quarter: 2024Q3

REPORT INFORMATION
  Report Type: Report from Study
  Country: US (occurrence: US)
  Receive Date: 20240910
  Receipt Date: 20240910
  Transmission Date: 20241016
  Serious: Yes (Other)
  Sender: BEIGENE
  Company Number: US-BEIGENE-BGN-2024-014299

PATIENT

DRUGS (3)
  1. BRUKINSA [Suspect]
     Active Substance: ZANUBRUTINIB
     Indication: Chronic lymphocytic leukaemia
     Dosage: 160 MILLIGRAM, BID
     Route: 048
     Dates: start: 20240101
  2. BRUKINSA [Suspect]
     Active Substance: ZANUBRUTINIB
     Dosage: UNK
     Route: 048
  3. BRUKINSA [Suspect]
     Active Substance: ZANUBRUTINIB
     Dosage: 320 MILLIGRAM TOTAL PER DAY
     Route: 048

REACTIONS (4)
  - Cardiac flutter [Recovered/Resolved]
  - Heart rate decreased [Recovered/Resolved]
  - Weight abnormal [Unknown]
  - Alopecia [Unknown]
